FAERS Safety Report 5490074-1 (Version None)
Quarter: 2007Q4

REPORT INFORMATION
  Report Type: 
  Country: None (occurrence: None)
  Receive Date: 20071018
  Receipt Date: 20071016
  Transmission Date: 20080405
  Serious: Yes (Hospitalization)
  Sender: FDA-Public Use
  Company Number: HR-ROXANE LABORATORIES, INC-2007-BP-22823RO

PATIENT
  Age: 52 Year
  Sex: Female

DRUGS (3)
  1. FUROSEMIDE [Suspect]
     Indication: RENAL FAILURE ACUTE
  2. ESOMEPRASOLE [Suspect]
  3. ALLOPURINOL [Suspect]
     Indication: HYPERURICAEMIA

REACTIONS (6)
  - DRUG RASH WITH EOSINOPHILIA AND SYSTEMIC SYMPTOMS [None]
  - EOSINOPHILIA [None]
  - HEPATIC FUNCTION ABNORMAL [None]
  - PYREXIA [None]
  - RASH MORBILLIFORM [None]
  - RENAL IMPAIRMENT [None]
